FAERS Safety Report 9487371 (Version 4)
Quarter: 2014Q1

REPORT INFORMATION
  Report Type: Report from Study
  Country: FR (occurrence: FR)
  Receive Date: 20130829
  Receipt Date: 20140313
  Transmission Date: 20141002
  Serious: Yes (Hospitalization)
  Sender: FDA-Public Use
  Company Number: FR-ROCHE-1264740

PATIENT
  Age: 49 Year
  Sex: Female
  Weight: 60.4 kg

DRUGS (6)
  1. PERTUZUMAB [Suspect]
     Indication: HER-2 POSITIVE BREAST CANCER
     Dosage: LOADING DOSE CYCLE 1 ONLY
     Route: 042
     Dates: start: 20121107, end: 20121107
  2. PERTUZUMAB [Suspect]
     Dosage: MAINTENANCE DOSE?DATE OF LAST DOSE PRIOR TO SAE: 03/MAY/2013
     Route: 042
     Dates: start: 20121128
  3. TRASTUZUMAB [Suspect]
     Indication: HER-2 POSITIVE BREAST CANCER
     Dosage: LOADING DOSE CYCLE 1 ONLY
     Route: 042
     Dates: start: 20121107, end: 20121107
  4. TRASTUZUMAB [Suspect]
     Dosage: MAINTENANCE DOSE?DATE OF LAST DOSE PRIOR TO SAE: 03/MAY/2013
     Route: 042
     Dates: start: 20121128
  5. VINORELBINE [Suspect]
     Indication: HER-2 POSITIVE BREAST CANCER
     Dosage: FREQUENCY: ON DAY 1 AND DAY 8 OF EACH 3 WEEK CYCLE.?DATE OF LAST DOSE PRIOR TO SAE: 03/MAY/2013. DRU
     Route: 042
     Dates: start: 20121107, end: 20130510
  6. VINORELBINE [Suspect]
     Dosage: ON DAY 1 AND DAY 8 OF EACH 3 WEEK CYCLE.?DRUG RESTARTED.
     Route: 042
     Dates: start: 20130529

REACTIONS (1)
  - Malaise [Recovered/Resolved]
